FAERS Safety Report 16581616 (Version 2)
Quarter: 2019Q4

REPORT INFORMATION
  Report Type: Spontaneous
  Country: US (occurrence: US)
  Receive Date: 20190716
  Receipt Date: 20191218
  Transmission Date: 20200122
  Serious: No
  Sender: FDA-Public Use
  Company Number: PHEH2019US028942

PATIENT
  Age: 58 Year
  Sex: Female

DRUGS (1)
  1. BIMATOPROST. [Suspect]
     Active Substance: BIMATOPROST
     Indication: PRODUCT USED FOR UNKNOWN INDICATION
     Dosage: 1X3 ML
     Route: 047
     Dates: start: 20190624

REACTIONS (5)
  - Dry eye [Unknown]
  - Conjunctivitis [Unknown]
  - Vitreous floaters [Not Recovered/Not Resolved]
  - Eye swelling [Unknown]
  - Photophobia [Not Recovered/Not Resolved]

NARRATIVE: CASE EVENT DATE: 20190624
